FAERS Safety Report 8890029 (Version 7)
Quarter: 2013Q1

REPORT INFORMATION
  Report Type: Spontaneous
  Country: US (occurrence: US)
  Receive Date: 20121107
  Receipt Date: 20130320
  Transmission Date: 20140127
  Serious: No
  Sender: FDA-Public Use
  Company Number: US-PFIZER INC-2012271681

PATIENT
  Age: 52 Year
  Sex: Male

DRUGS (20)
  1. DEPO-TESTOSTERONE [Suspect]
     Indication: HYPOGONADISM
     Dosage: 1 ML, WEEKLY
     Route: 030
     Dates: start: 201108
  2. OXYCODONE/ACETAMINOPHEN [Concomitant]
     Dosage: 10-325 MG
  3. MAXALT [Concomitant]
     Dosage: 10 MG, UNK
  4. TESTOSTERONE CIPIONATE [Concomitant]
     Dosage: UNK MG/ML, UNK
  5. GABAPENTIN [Concomitant]
     Dosage: 100 MG, UNK
  6. TRAMADOL [Concomitant]
     Dosage: 50 MG, UNK
  7. VITAMIN C [Concomitant]
     Dosage: 500 MG, UNK
  8. VITAMIN B COMPLEX [Concomitant]
     Dosage: UNK
  9. TUMS SMOOTHIES [Concomitant]
     Dosage: 750 MG, UNK
  10. SUMATRIPTAN SUCCINATE [Concomitant]
     Dosage: 100 MG, UNK
  11. SUDAFED [Concomitant]
     Dosage: 30 MG, UNK
  12. PROBIOTIC [Concomitant]
     Dosage: UNK
  13. OMEPRAZOLE [Concomitant]
     Dosage: 20 MG, UNK
  14. MELOXICAM [Concomitant]
     Dosage: 7.5 MG, UNK
  15. GLUCOSAMINE CHONDROITIN COMPLEX [Concomitant]
     Dosage: UNK
  16. FLUTICASONE PROPIONATE [Concomitant]
     Dosage: 50 UG, UNK
  17. EPIPEN [Concomitant]
     Dosage: 0.3MG/0.3ML DEVICE
  18. ASPIRIN [Concomitant]
     Dosage: 325 MG, UNK
  19. ADVIL [Concomitant]
     Dosage: 200 MG, UNK
  20. CENTRUM SILVER [Concomitant]
     Dosage: UNK

REACTIONS (3)
  - Suspected counterfeit product [Unknown]
  - Product deposit [Unknown]
  - Drug ineffective [Unknown]
